FAERS Safety Report 10757900 (Version 1)
Quarter: 2015Q1

REPORT INFORMATION
  Report Type: Spontaneous
  Country: GB (occurrence: GB)
  Receive Date: 20150203
  Receipt Date: 20150203
  Transmission Date: 20150721
  Serious: Yes (Other)
  Sender: FDA-Public Use
  Company Number: GB-MYLANLABS-2015M1002650

PATIENT

DRUGS (6)
  1. TRIAMCINOLONE [Interacting]
     Active Substance: TRIAMCINOLONE
     Route: 030
  2. RITONAVIR. [Suspect]
     Active Substance: RITONAVIR
     Indication: HIV INFECTION
     Route: 065
     Dates: start: 201305
  3. TRUVADA [Concomitant]
     Active Substance: EMTRICITABINE\TENOFOVIR DISOPROXIL FUMARATE
     Indication: HIV INFECTION
     Route: 065
     Dates: start: 201305
  4. TRIAMCINOLONE [Interacting]
     Active Substance: TRIAMCINOLONE
     Indication: RASH
     Route: 030
  5. TAMSULOSIN [Interacting]
     Active Substance: TAMSULOSIN
     Route: 065
  6. DARUNAVIR [Concomitant]
     Active Substance: DARUNAVIR
     Indication: HIV INFECTION
     Route: 065
     Dates: start: 201305

REACTIONS (4)
  - Drug interaction [Unknown]
  - Cushing^s syndrome [Unknown]
  - Retrograde ejaculation [Recovering/Resolving]
  - Drug interaction [Recovering/Resolving]
